FAERS Safety Report 10031443 (Version 1)
Quarter: 2014Q1

REPORT INFORMATION
  Report Type: Spontaneous
  Country: US (occurrence: US)
  Receive Date: 20140324
  Receipt Date: 20140324
  Transmission Date: 20141002
  Serious: No
  Sender: FDA-Public Use
  Company Number: US-009507513-1403USA009406

PATIENT
  Age: 34 Year
  Sex: Male

DRUGS (3)
  1. JANUMET [Suspect]
     Indication: TYPE 2 DIABETES MELLITUS
     Dosage: 50 MG, BID
     Route: 048
     Dates: start: 201302, end: 2013
  2. JANUMET [Suspect]
     Dosage: 1 TABLET, 4 TIMES A WEEK
     Route: 048
     Dates: start: 2013, end: 2013
  3. JANUMET [Suspect]
     Dosage: 50 MG, BID
     Route: 048
     Dates: start: 2013, end: 201311

REACTIONS (2)
  - Peripheral coldness [Recovered/Resolved with Sequelae]
  - Inappropriate schedule of drug administration [Unknown]
